FAERS Safety Report 25962092 (Version 1)
Quarter: 2025Q4

REPORT INFORMATION
  Report Type: Spontaneous
  Country: US (occurrence: US)
  Receive Date: 20251027
  Receipt Date: 20251027
  Transmission Date: 20260117
  Serious: Yes (Other)
  Sender: CHIA TAI TIANQING PHARMACEUTICAL GROUP
  Company Number: None

PATIENT
  Age: 10 Year
  Sex: Male
  Weight: 37.1 kg

DRUGS (1)
  1. FOSAPREPITANT [Suspect]
     Active Substance: FOSAPREPITANT
     Indication: Prophylaxis of nausea and vomiting
     Dates: start: 20250912, end: 20250912

REACTIONS (3)
  - Anaphylactic reaction [Recovered/Resolved]
  - Oxygen saturation decreased [Recovered/Resolved]
  - Pharyngeal swelling [Recovered/Resolved]

NARRATIVE: CASE EVENT DATE: 20250912
